FAERS Safety Report 4868553-7 (Version None)
Quarter: 2005Q4

REPORT INFORMATION
  Report Type: 
  Country: None (occurrence: None)
  Receive Date: 20051227
  Receipt Date: 20051222
  Transmission Date: 20060501
  Serious: Yes (Hospitalization)
  Sender: FDA-Public Use
  Company Number: SU-2005-004418

PATIENT
  Age: 61 Year
  Sex: Male
  Weight: 83.9154 kg

DRUGS (2)
  1. BENICAR HCT [Suspect]
     Indication: HYPERTENSION
     Dosage: 40.125 MG QD PO
     Route: 048
     Dates: start: 20040401, end: 20051109
  2. TOPROL-XL [Concomitant]

REACTIONS (1)
  - HEPATIC FAILURE [None]
